FAERS Safety Report 9820290 (Version 1)
Quarter: 2013Q4

REPORT INFORMATION
  Report Type: Spontaneous
  Country: US (occurrence: None)
  Receive Date: 20131224
  Receipt Date: 20131224
  Transmission Date: 20140711
  Serious: No
  Sender: FDA-Public Use
  Company Number: PHEH2013US021798

PATIENT
  Age: 45 Year
  Sex: Female
  Weight: 77.1 kg

DRUGS (2)
  1. GILENYA (FINGOLIMOD) CAPSULE, 0.5MG [Suspect]
     Indication: SECONDARY PROGRESSIVE MULTIPLE SCLEROSIS
     Route: 048
     Dates: start: 201010
  2. GILENYA (FINGOLIMOD) CAPSULE, 0.5MG [Suspect]
     Indication: OFF LABEL USE
     Route: 048
     Dates: start: 201010

REACTIONS (1)
  - No adverse event [None]
